FAERS Safety Report 7263173-1 (Version None)
Quarter: 2011Q1

REPORT INFORMATION
  Report Type: 
  Country: None (occurrence: None)
  Receive Date: 20110130
  Receipt Date: 20101011
  Transmission Date: 20110831
  Serious: No
  Sender: FDA-Public Use
  Company Number: US-ABBOTT-10P-163-0677825-00

PATIENT
  Age: 43 Year
  Sex: Male

DRUGS (8)
  1. LANTUS [Concomitant]
     Indication: DIABETES MELLITUS
  2. HUMILIN [Concomitant]
     Indication: DIABETES MELLITUS
  3. AMOTRIPTYLINE [Concomitant]
     Indication: NEUROPATHY PERIPHERAL
  4. PERCOCET [Concomitant]
     Indication: NEUROPATHY PERIPHERAL
  5. HUMIRA [Suspect]
     Indication: PSORIASIS
     Dates: start: 20100501, end: 20100915
  6. LASIX [Concomitant]
     Indication: FLUID RETENTION
  7. NORVASC [Concomitant]
     Indication: HYPERTENSION
  8. ASPIRIN [Concomitant]
     Indication: PRODUCT USED FOR UNKNOWN INDICATION

REACTIONS (3)
  - FURUNCLE [None]
  - BLOOD GLUCOSE INCREASED [None]
  - INFLUENZA [None]
